FAERS Safety Report 22025336 (Version 1)
Quarter: 2023Q1

REPORT INFORMATION
  Report Type: Spontaneous
  Country: US (occurrence: None)
  Receive Date: 20230223
  Receipt Date: 20230223
  Transmission Date: 20230417
  Serious: No
  Sender: FDA-Public Use
  Company Number: US-ROCHE-3077811

PATIENT
  Age: 60 Year
  Sex: Female

DRUGS (21)
  1. XOLAIR [Suspect]
     Active Substance: OMALIZUMAB
     Indication: Chronic spontaneous urticaria
     Dosage: 150MG/ML PREFILLED SYRINGE.?ONE 150 MG XOLAIR INJECTION IN EACH ARM
     Route: 058
     Dates: start: 20211207
  2. XOLAIR [Suspect]
     Active Substance: OMALIZUMAB
  3. XOLAIR [Suspect]
     Active Substance: OMALIZUMAB
  4. XOLAIR [Suspect]
     Active Substance: OMALIZUMAB
     Indication: Dermatitis contact
     Route: 058
     Dates: start: 20211201
  5. XOLAIR [Suspect]
     Active Substance: OMALIZUMAB
  6. XOLAIR [Suspect]
     Active Substance: OMALIZUMAB
  7. LIPITOR [Concomitant]
     Active Substance: ATORVASTATIN CALCIUM
     Route: 048
     Dates: start: 20200612
  8. BIOTIN [Concomitant]
     Active Substance: BIOTIN
     Dosage: RAPID DISSOLVE
     Route: 048
  9. CALCIUM CARBONATE\CHOLECALCIFEROL [Concomitant]
     Active Substance: CALCIUM CARBONATE\CHOLECALCIFEROL
     Dosage: TAKE BY MOUTH
     Route: 048
  10. SINEQUAN [Concomitant]
     Active Substance: DOXEPIN HYDROCHLORIDE
     Dosage: TAKE 1000 MCG BY MOUTH
     Route: 048
     Dates: start: 20220413
  11. EPINEPHRINE [Concomitant]
     Active Substance: EPINEPHRINE
     Dosage: 0.3MG/0.3ML INJECTION, AUTO INJECTOR
     Dates: start: 20211105
  12. PEPCID [Concomitant]
     Active Substance: FAMOTIDINE
     Route: 048
     Dates: start: 20211104
  13. PLAQUENIL [Concomitant]
     Active Substance: HYDROXYCHLOROQUINE SULFATE
     Route: 048
     Dates: start: 20220426
  14. FISH OIL [Concomitant]
     Active Substance: FISH OIL
     Route: 048
  15. PROTONIX [Concomitant]
     Active Substance: PANTOPRAZOLE SODIUM
     Dosage: TAE 1 TABLET BY MOUTH EVERY DAY, DELAYED RELEASE
     Route: 048
     Dates: start: 20200409
  16. DELTASONE [Concomitant]
     Active Substance: PREDNISONE
     Dosage: TAPERING DOSE NOW- 5MG DAILY
     Route: 048
     Dates: start: 20220118
  17. DELTASONE [Concomitant]
     Active Substance: PREDNISONE
     Route: 048
     Dates: start: 20220413
  18. TRETINOIN [Concomitant]
     Active Substance: TRETINOIN
     Dosage: EVERY NIGHT
     Dates: start: 20180904
  19. ARISTOCORT [Concomitant]
     Active Substance: TRIAMCINOLONE DIACETATE
     Dosage: APPLY TO HANDS TWICE DAILY X 2 WEEKS THEN STOP FOR 2 WEEKS AND REPEAT FOR FLARES
     Dates: start: 20200217
  20. SINGULAIR [Concomitant]
     Active Substance: MONTELUKAST SODIUM
     Route: 048
     Dates: start: 20210429
  21. RESTASIS [Concomitant]
     Active Substance: CYCLOSPORINE
     Indication: Dry eye

REACTIONS (5)
  - Product complaint [Unknown]
  - Underdose [Unknown]
  - Contusion [Unknown]
  - Ligament sprain [Unknown]
  - Eczema [Unknown]

NARRATIVE: CASE EVENT DATE: 20220412
